FAERS Safety Report 6731009-0 (Version None)
Quarter: 2010Q2

REPORT INFORMATION
  Report Type: 
  Country: None (occurrence: None)
  Receive Date: 20100518
  Receipt Date: 20100506
  Transmission Date: 20101027
  Serious: Yes (Hospitalization)
  Sender: FDA-Public Use
  Company Number: JP-PFIZER INC-2010059008

PATIENT
  Age: 71 Year
  Sex: Male

DRUGS (3)
  1. ARGATROBAN [Suspect]
     Indication: EMBOLIC STROKE
     Route: 042
  2. RADICUT [Suspect]
     Indication: EMBOLIC STROKE
     Dosage: UNK
     Route: 042
  3. WARFARIN POTASSIUM [Concomitant]
     Indication: EMBOLIC STROKE
     Dosage: UNK
     Route: 048

REACTIONS (2)
  - ANEURYSM RUPTURED [None]
  - INTRA-ABDOMINAL HAEMORRHAGE [None]
